FAERS Safety Report 20716586 (Version 1)
Quarter: 2022Q2

REPORT INFORMATION
  Report Type: Spontaneous
  Country: US (occurrence: US)
  Receive Date: 20220416
  Receipt Date: 20220416
  Transmission Date: 20220721
  Serious: No
  Sender: FDA-Public Use
  Company Number: US-TEVA-2022-US-2021262

PATIENT
  Age: 65 Year
  Sex: Female

DRUGS (1)
  1. ALBUTEROL SULFATE [Suspect]
     Active Substance: ALBUTEROL SULFATE
     Indication: Asthma
     Dosage: INHALATION - AEROSOL
     Route: 065
     Dates: start: 20211201

REACTIONS (3)
  - Palpitations [Unknown]
  - Dehydration [Unknown]
  - Product use complaint [Unknown]

NARRATIVE: CASE EVENT DATE: 20211201
